FAERS Safety Report 6143019-5 (Version None)
Quarter: 2009Q2

REPORT INFORMATION
  Report Type: 
  Country: None (occurrence: None)
  Receive Date: 20090403
  Receipt Date: 20090320
  Transmission Date: 20091009
  Serious: Yes (Hospitalization)
  Sender: FDA-Public Use
  Company Number: US-PFIZER INC-2009181449

PATIENT
  Age: 38 Year
  Sex: Male
  Weight: 78.005 kg

DRUGS (5)
  1. MARAVIROC [Suspect]
     Indication: HIV INFECTION
     Dosage: 150 MG, 2X/DAY
     Route: 048
     Dates: start: 20081216
  2. TRUVADA [Suspect]
     Indication: HIV INFECTION
     Dosage: 1 TABLET, 1X/DAY
     Route: 048
     Dates: start: 20081216
  3. DARUNAVIR [Suspect]
     Indication: HIV INFECTION
     Dosage: 800 MG, 1X/DAY
     Route: 048
     Dates: start: 20081216
  4. RITONAVIR [Suspect]
     Indication: HIV INFECTION
     Dosage: 100 MG, 1X/DAY
     Route: 048
     Dates: start: 20081216
  5. RALTEGRAVIR [Suspect]
     Indication: HIV INFECTION
     Dosage: 400 MG, 2X/DAY
     Route: 048
     Dates: start: 20081216

REACTIONS (1)
  - PYELONEPHRITIS [None]
